FAERS Safety Report 9260806 (Version 1)
Quarter: 2013Q2

REPORT INFORMATION
  Report Type: Spontaneous
  Country: FR (occurrence: FR)
  Receive Date: 20130429
  Receipt Date: 20130429
  Transmission Date: 20140414
  Serious: Yes (Hospitalization, Disabling)
  Sender: FDA-Public Use
  Company Number: FR-ALLERGAN-1305866US

PATIENT
  Age: 11 Year
  Sex: Male

DRUGS (5)
  1. BOTOX [Suspect]
     Indication: SALIVARY HYPERSECRETION
     Dosage: UNK, SINGLE
     Dates: start: 20120315, end: 20120315
  2. DEPAKINE [Suspect]
     Indication: EPILEPSY
     Dosage: 300 MG, BID
     Route: 048
  3. NEURONTIN [Suspect]
     Indication: EPILEPSY
     Dosage: 300 MG, BID
     Route: 048
  4. URBANYL [Suspect]
     Indication: EPILEPSY
     Dosage: 5 MG, QD
     Route: 048
  5. KEPPRA [Suspect]
     Indication: EPILEPSY
     Dosage: G300 MG, BID
     Route: 048

REACTIONS (4)
  - Gingival hyperplasia [Recovering/Resolving]
  - Respiratory disorder [Unknown]
  - Mastication disorder [Unknown]
  - Jaw disorder [Unknown]
